FAERS Safety Report 8936809 (Version 1)
Quarter: 2012Q4

REPORT INFORMATION
  Report Type: 
  Country: IT (occurrence: IT)
  Receive Date: 20121130
  Receipt Date: 20121130
  Transmission Date: 20130627
  Serious: Yes (Other)
  Sender: FDA-Public Use
  Company Number: PHHY2012IT096515

PATIENT
  Age: 73 Year
  Sex: Male

DRUGS (4)
  1. COTAREG [Suspect]
     Indication: HYPERTENSION
     Dosage: 320/25 mg, daily
     Route: 048
     Dates: start: 20120607, end: 20120707
  2. DILATREND [Suspect]
     Indication: HYPERTENSION
     Dosage: 1 DF, (6.25 mg)
     Route: 048
     Dates: start: 20110708, end: 20120707
  3. ZOCOR [Concomitant]
  4. CARDIOASPIRIN [Concomitant]

REACTIONS (1)
  - Presyncope [Recovering/Resolving]
